FAERS Safety Report 5641238-5 (Version None)
Quarter: 2008Q1

REPORT INFORMATION
  Report Type: 
  Country: None (occurrence: None)
  Receive Date: 20080227
  Receipt Date: 20070402
  Transmission Date: 20080703
  Serious: No
  Sender: FDA-Public Use
  Company Number: A0645380A

PATIENT
  Age: 25 Year
  Sex: Female

DRUGS (1)
  1. NICORETTE (MINT) [Suspect]
     Dates: start: 20070228

REACTIONS (2)
  - CHEST DISCOMFORT [None]
  - DYSPNOEA [None]
